FAERS Safety Report 20480399 (Version 2)
Quarter: 2022Q1

REPORT INFORMATION
  Report Type: Spontaneous
  Country: AU (occurrence: AU)
  Receive Date: 20220216
  Receipt Date: 20220303
  Transmission Date: 20220423
  Serious: Yes (Other)
  Sender: FDA-Public Use
  Company Number: AU-TEVA-2022-AU-2008118

PATIENT
  Sex: Male

DRUGS (1)
  1. TESTOSTERONE UNDECANOATE [Suspect]
     Active Substance: TESTOSTERONE UNDECANOATE
     Indication: Androgen deficiency
     Dosage: 1000 MILLIGRAM DAILY;
     Route: 030

REACTIONS (3)
  - Pulmonary oil microembolism [Unknown]
  - Syncope [Unknown]
  - Cough [Unknown]
